FAERS Safety Report 15150554 (Version 1)
Quarter: 2018Q3

REPORT INFORMATION
  Report Type: Spontaneous
  Country: US (occurrence: US)
  Receive Date: 20180716
  Receipt Date: 20180716
  Transmission Date: 20181010
  Serious: Yes (Other)
  Sender: FDA-Public Use
  Company Number: US-ABBVIE-18K-163-2417173-00

PATIENT

DRUGS (5)
  1. METHOTREXATE. [Suspect]
     Active Substance: METHOTREXATE
     Indication: ANALGESIC THERAPY
     Route: 065
     Dates: start: 201711, end: 201801
  2. OXYCODONE [Suspect]
     Active Substance: OXYCODONE
     Indication: ANALGESIC THERAPY
     Route: 065
     Dates: start: 201711, end: 201801
  3. HUMIRA [Suspect]
     Active Substance: ADALIMUMAB
     Indication: ANKYLOSING SPONDYLITIS
     Route: 058
  4. PREDNISONE. [Concomitant]
     Active Substance: PREDNISONE
     Indication: ANALGESIC THERAPY
     Dates: start: 201711, end: 201801
  5. SOMA [Suspect]
     Active Substance: CARISOPRODOL
     Indication: ANALGESIC THERAPY
     Dosage: 4 SOMA A DAY
     Route: 065
     Dates: start: 201711, end: 201801

REACTIONS (10)
  - Mental status changes [Unknown]
  - Drug effect incomplete [Unknown]
  - Withdrawal syndrome [Unknown]
  - Pain [Unknown]
  - Overdose [Unknown]
  - Nausea [Unknown]
  - Seizure [Unknown]
  - Loss of consciousness [Unknown]
  - Injection site pain [Unknown]
  - Drug abuse [Unknown]
